APPROVED DRUG PRODUCT: DIVIGEL
Active Ingredient: ESTRADIOL
Strength: 0.1% (1GM/PACKET)
Dosage Form/Route: GEL;TRANSDERMAL
Application: N022038 | Product #003 | TE Code: AB
Applicant: VERTICAL PHARMACEUTICALS LLC
Approved: Jun 4, 2007 | RLD: Yes | RS: Yes | Type: RX